FAERS Safety Report 17771915 (Version 2)
Quarter: 2020Q2

REPORT INFORMATION
  Report Type: Spontaneous
  Country: US (occurrence: US)
  Receive Date: 20200512
  Receipt Date: 20200619
  Transmission Date: 20200714
  Serious: No
  Sender: FDA-Public Use
  Company Number: US-JNJFOC-20200511484

PATIENT
  Age: 31 Year
  Sex: Female
  Weight: 52.21 kg

DRUGS (2)
  1. STELARA [Suspect]
     Active Substance: USTEKINUMAB
     Indication: CROHN^S DISEASE
     Route: 058
     Dates: start: 201802
  2. STELARA [Suspect]
     Active Substance: USTEKINUMAB

REACTIONS (6)
  - Off label use [Unknown]
  - Device leakage [Unknown]
  - Product dose omission [Unknown]
  - Exposure during pregnancy [Not Recovered/Not Resolved]
  - Product use issue [Unknown]
  - Drug delivery system malfunction [Unknown]

NARRATIVE: CASE EVENT DATE: 201802
